FAERS Safety Report 17019039 (Version 4)
Quarter: 2020Q1

REPORT INFORMATION
  Report Type: Report from Study
  Country: PA (occurrence: PA)
  Receive Date: 20191112
  Receipt Date: 20200221
  Transmission Date: 20200409
  Serious: Yes (Other)
  Sender: FDA-Public Use
  Company Number: PA-ROCHE-2326272

PATIENT
  Age: 11 Year
  Sex: Female
  Weight: 90 kg

DRUGS (7)
  1. XOLAIR [Suspect]
     Active Substance: OMALIZUMAB
     Dosage: UNK
     Route: 065
     Dates: start: 20151224
  2. XOLAIR [Suspect]
     Active Substance: OMALIZUMAB
     Route: 065
  3. XOLAIR [Suspect]
     Active Substance: OMALIZUMAB
     Dosage: UNK
     Route: 065
     Dates: start: 20151106
  4. XOLAIR [Suspect]
     Active Substance: OMALIZUMAB
     Dosage: UNK
     Route: 065
     Dates: start: 20161012
  5. XOLAIR [Suspect]
     Active Substance: OMALIZUMAB
     Dosage: UNK
     Route: 065
     Dates: start: 20151001
  6. XOLAIR [Suspect]
     Active Substance: OMALIZUMAB
     Indication: ASTHMA
     Route: 065
  7. XOLAIR [Suspect]
     Active Substance: OMALIZUMAB
     Dosage: UNK
     Route: 065
     Dates: start: 20170724

REACTIONS (19)
  - Cough [Not Recovered/Not Resolved]
  - Syncope [Unknown]
  - Dizziness [Unknown]
  - Nasal pruritus [Recovering/Resolving]
  - Nasopharyngitis [Recovering/Resolving]
  - Asthmatic crisis [Not Recovered/Not Resolved]
  - Lung disorder [Unknown]
  - Respiratory tract congestion [Recovering/Resolving]
  - Bradycardia [Unknown]
  - Tachycardia [Unknown]
  - Dyspnoea [Unknown]
  - Headache [Unknown]
  - Rhinitis [Not Recovered/Not Resolved]
  - Sensitivity to weather change [Unknown]
  - Sinusitis [Recovering/Resolving]
  - Hypotension [Unknown]
  - Agitation [Unknown]
  - Chest pain [Unknown]
  - Tremor [Unknown]

NARRATIVE: CASE EVENT DATE: 201510
